FAERS Safety Report 8840530 (Version 1)
Quarter: 2012Q4

REPORT INFORMATION
  Report Type: 
  Country: US (occurrence: US)
  Receive Date: 20121015
  Receipt Date: 20121015
  Transmission Date: 20130627
  Serious: Yes (Other)
  Sender: FDA-Public Use
  Company Number: US-ASTRAZENECA-2012SE76957

PATIENT
  Age: 52 Year
  Sex: Female
  Weight: 49.9 kg

DRUGS (5)
  1. NEXIUM [Suspect]
     Indication: GASTROOESOPHAGEAL REFLUX DISEASE
     Route: 048
  2. NEXIUM [Suspect]
     Indication: LARYNGEAL ULCERATION
     Route: 048
  3. PULMICORT FLEXHALER [Suspect]
     Indication: ASTHMA
     Route: 055
  4. CHANTIX [Suspect]
     Route: 065
  5. UNSPECIFIED INGREDIENT [Suspect]
     Indication: TOBACCO USER
     Dosage: DAILY

REACTIONS (8)
  - Asthma [Unknown]
  - Brain injury [Unknown]
  - Aphonia [Unknown]
  - Agitation [Unknown]
  - Gastrooesophageal reflux disease [Unknown]
  - Regurgitation [Unknown]
  - Laryngeal ulceration [Unknown]
  - Drug dose omission [Unknown]
